FAERS Safety Report 5068191-X (Version None)
Quarter: 2006Q3

REPORT INFORMATION
  Report Type: 
  Country: None (occurrence: None)
  Receive Date: 20060802
  Receipt Date: 20041210
  Transmission Date: 20061208
  Serious: Yes (Hospitalization)
  Sender: FDA-Public Use
  Company Number: US-BRISTOL-MYERS SQUIBB COMPANY-12791380

PATIENT
  Age: 79 Year
  Sex: Female
  Weight: 70 kg

DRUGS (15)
  1. COUMADIN [Suspect]
     Indication: ATRIAL FIBRILLATION
     Dosage: TAKING 10MG X 6 DAYS + 7MG X 1 DAY FOR FEW YEARS; MD WANTS STOPPED ON 12/10/04,3 DAYS PRIOR SURGERY.
     Route: 048
  2. CLINDAMYCIN [Suspect]
     Dates: start: 20041103
  3. PLAVIX [Concomitant]
     Dosage: STOPPED 08-DEC-2004, 5 DAYS BEFORE ORAL SURGERY
     Dates: start: 20040901, end: 20041208
  4. ASPIRIN [Concomitant]
     Dates: start: 20041001, end: 20041208
  5. DIGOXIN [Concomitant]
     Dates: start: 20031001
  6. TOPROL-XL [Concomitant]
     Dates: start: 20031001
  7. CARDIZEM [Concomitant]
     Dosage: TAKING ^FOR YEARS^
  8. INSULIN [Concomitant]
     Dosage: 70/30 INSULIN: 12 UNITS IN MORNING + 16 UNITS IN EVENING
     Route: 058
     Dates: start: 20031001
  9. CALCIUM CITRATE [Concomitant]
     Dosage: TAKING ^FOR A WHILE^
  10. FOLIC ACID [Concomitant]
  11. VITAMIN B-12 [Concomitant]
  12. LIPITOR [Concomitant]
     Dosage: TAKING ^FOR A WHILE^
  13. METFORMIN HYDROCHLORIDE [Concomitant]
     Dosage: 500MG, 2 TABLETS FOR 6 MONTHS
  14. DEPAKOTE [Concomitant]
  15. KEPPRA [Concomitant]

REACTIONS (5)
  - ALOPECIA [None]
  - CEREBROVASCULAR ACCIDENT [None]
  - INTERNATIONAL NORMALISED RATIO DECREASED [None]
  - MUSCULOSKELETAL CHEST PAIN [None]
  - TRANSIENT ISCHAEMIC ATTACK [None]
